FAERS Safety Report 6161724-1 (Version None)
Quarter: 2009Q2

REPORT INFORMATION
  Report Type: 
  Country: None (occurrence: None)
  Receive Date: 20090417
  Receipt Date: 20090417
  Transmission Date: 20091009
  Serious: Yes (Other)
  Sender: FDA-Public Use
  Company Number: None

PATIENT
  Age: 31 Year
  Sex: Female
  Weight: 52.1637 kg

DRUGS (1)
  1. 365 PRENATAL MULTI DIETARY SUPPLEMENT WHOLE FOODS [Suspect]
     Indication: BREAST FEEDING
     Dosage: 1 TABLET DAYLY PO
     Route: 048
     Dates: start: 20090410, end: 20090412

REACTIONS (18)
  - AMNESIA [None]
  - ANOREXIA [None]
  - ARTHRALGIA [None]
  - ASTHENIA [None]
  - BONE PAIN [None]
  - DIARRHOEA [None]
  - DISTURBANCE IN ATTENTION [None]
  - DIZZINESS [None]
  - DRUG EFFECT INCREASED [None]
  - FEELING COLD [None]
  - FEELING HOT [None]
  - FLUSHING [None]
  - HEADACHE [None]
  - NAUSEA [None]
  - SOMNOLENCE [None]
  - SYNCOPE [None]
  - VOMITING [None]
  - WEIGHT DECREASED [None]
